FAERS Safety Report 13856187 (Version 2)
Quarter: 2017Q4

REPORT INFORMATION
  Report Type: Report from Study
  Country: US (occurrence: US)
  Receive Date: 20170810
  Receipt Date: 20171214
  Transmission Date: 20180320
  Serious: Yes (Other)
  Sender: FDA-Public Use
  Company Number: US-VERTEX PHARMACEUTICALS-2017-004220

PATIENT
  Sex: Male

DRUGS (2)
  1. ORKAMBI [Suspect]
     Active Substance: IVACAFTOR\LUMACAFTOR
     Dosage: REDUCED DOSE
     Route: 048
     Dates: start: 2017
  2. ORKAMBI [Suspect]
     Active Substance: IVACAFTOR\LUMACAFTOR
     Indication: CYSTIC FIBROSIS
     Dosage: 100/125 MG TABLET, BID
     Route: 048
     Dates: start: 20170218, end: 2017

REACTIONS (2)
  - Sinusitis [Unknown]
  - Hepatic failure [Unknown]

NARRATIVE: CASE EVENT DATE: 2017
